FAERS Safety Report 6888614-0 (Version None)
Quarter: 2010Q3

REPORT INFORMATION
  Report Type: 
  Country: None (occurrence: None)
  Receive Date: 20100730
  Receipt Date: 20061026
  Transmission Date: 20110219
  Serious: Yes (Other)
  Sender: FDA-Public Use
  Company Number: US-PFIZER INC-2006133268

PATIENT
  Sex: Female
  Weight: 97.07 kg

DRUGS (1)
  1. SINEQUAN [Suspect]
     Indication: NERVOUSNESS
     Dosage: BID: EVERY DAY
     Dates: start: 19870101

REACTIONS (1)
  - HYPERTENSION [None]
